FAERS Safety Report 12394166 (Version 1)
Quarter: 2016Q2

REPORT INFORMATION
  Report Type: Spontaneous
  Country: US (occurrence: US)
  Receive Date: 20160523
  Receipt Date: 20160523
  Transmission Date: 20160815
  Serious: Yes (Other)
  Sender: FDA-Public Use
  Company Number: US-IPCA LABORATORIES LIMITED-IPC201605-000457

PATIENT
  Sex: Male

DRUGS (13)
  1. FUROSEMIDE. [Suspect]
     Active Substance: FUROSEMIDE
  2. LISPRO [Suspect]
     Active Substance: INSULIN LISPRO
  3. CELEXA [Suspect]
     Active Substance: CITALOPRAM HYDROBROMIDE
  4. TIKOSYN [Suspect]
     Active Substance: DOFETILIDE
  5. SPIRIVA [Suspect]
     Active Substance: TIOTROPIUM BROMIDE MONOHYDRATE
  6. XARELTO [Suspect]
     Active Substance: RIVAROXABAN
  7. TOPICIL [Suspect]
     Active Substance: CLINDAMYCIN PHOSPHATE
  8. ALLOPURINOL. [Suspect]
     Active Substance: ALLOPURINOL
  9. LIPITOR [Suspect]
     Active Substance: ATORVASTATIN CALCIUM
  10. METFORMIN HYDROCHLORIDE. [Suspect]
     Active Substance: METFORMIN HYDROCHLORIDE
  11. LOMOTIL [Suspect]
     Active Substance: ATROPINE SULFATE\DIPHENOXYLATE HYDROCHLORIDE
  12. JANUVIA [Suspect]
     Active Substance: SITAGLIPTIN PHOSPHATE
  13. ARICEPT [Suspect]
     Active Substance: DONEPEZIL HYDROCHLORIDE

REACTIONS (2)
  - Cardiac disorder [Unknown]
  - Diabetes mellitus [Unknown]
